FAERS Safety Report 8298947-1 (Version None)
Quarter: 2012Q2

REPORT INFORMATION
  Report Type: 
  Country: None (occurrence: None)
  Receive Date: 20120419
  Receipt Date: 20120404
  Transmission Date: 20120825
  Serious: Yes (Other)
  Sender: FDA-Public Use
  Company Number: PHHY2012DE003088

PATIENT
  Sex: Male
  Weight: 64.6 kg

DRUGS (2)
  1. CYCLOSPORINE [Suspect]
     Dosage: 100 MG, PER DAY
     Route: 048
     Dates: start: 20120101
  2. CYCLOSPORINE [Suspect]
     Indication: DERMATITIS ATOPIC
     Dosage: 300 MG, PER DAY
     Route: 048
     Dates: start: 20111201, end: 20120101

REACTIONS (7)
  - LOW DENSITY LIPOPROTEIN INCREASED [None]
  - BLOOD CHOLESTEROL INCREASED [None]
  - GILBERT'S SYNDROME [None]
  - ABDOMINAL PAIN UPPER [None]
  - BLOOD TRIGLYCERIDES INCREASED [None]
  - GASTROINTESTINAL INFECTION [None]
  - JAUNDICE [None]
